FAERS Safety Report 4848317-0 (Version None)
Quarter: 2005Q4

REPORT INFORMATION
  Report Type: 
  Country: None (occurrence: None)
  Receive Date: 20051208
  Receipt Date: 20051125
  Transmission Date: 20060501
  Serious: Yes (Other)
  Sender: FDA-Public Use
  Company Number: 2005AP06147

PATIENT
  Age: 18590 Day
  Sex: Female

DRUGS (15)
  1. IRESSA [Suspect]
     Indication: OROPHARYNGEAL CANCER STAGE UNSPECIFIED
     Route: 048
     Dates: start: 20050928
  2. CISPLATIN [Suspect]
     Route: 042
     Dates: start: 20051010
  3. CISPLATIN [Suspect]
     Route: 042
     Dates: start: 20051031
  4. CISPLATIN [Suspect]
     Route: 042
     Dates: start: 20051121
  5. RADIOTHERAPY [Suspect]
     Dosage: 2 GY - STOPPED 12 OCT 2005 DUE TO HOLIDAY
     Dates: start: 20051010, end: 20051011
  6. RADIOTHERAPY [Suspect]
     Dosage: 2 GY - STOPPED 16 OCT 2005 (SUNDAY)
     Dates: start: 20051013, end: 20051015
  7. RADIOTHERAPY [Suspect]
     Dates: start: 20051017, end: 20051021
  8. RADIOTHERAPY [Suspect]
     Dosage: 2 GY - STOPPED 29 + 30 OCT 2005 (WEEKEND)
     Dates: start: 20051024, end: 20051028
  9. RADIOTHERAPY [Suspect]
     Dosage: 2 GY - STOPPED 01 NOV 2005 (HOLIDAY)
     Dates: start: 20051031
  10. RADIOTHERAPY [Suspect]
     Dosage: 2 GY - STOPPED 06 NOV (SUNDAY)
     Dates: start: 20051102, end: 20051105
  11. RADIOTHERAPY [Suspect]
     Dosage: 2 GY - STOPPED 8 NOV (HOLIDAY)
     Dates: start: 20051107
  12. RADIOTHERAPY [Suspect]
     Dosage: 2 GY - STOPPED 13 NOV (SUNDAY)
     Dates: start: 20051109, end: 20051112
  13. RADIOTHERAPY [Suspect]
     Dosage: 2 GY - STOPPED 15 NOV 2005 (HOLIDAY)
     Dates: start: 20051114
  14. RADIOTHERAPY [Suspect]
     Dosage: 2 GY - STOPPED 20 NOV 2005 (SUNDAY)
     Dates: start: 20051116, end: 20051119
  15. RADIOTHERAPY [Suspect]
     Dosage: 2 GY
     Dates: start: 20051121, end: 20051123

REACTIONS (1)
  - HYPOKALAEMIA [None]
